FAERS Safety Report 8502128-3 (Version None)
Quarter: 2012Q2

REPORT INFORMATION
  Report Type: 
  Country: None (occurrence: None)
  Receive Date: 20120405
  Receipt Date: 20101004
  Transmission Date: 20120825
  Serious: Yes (Other)
  Sender: FDA-Public Use
  Company Number: PHHY2010US66478

PATIENT
  Age: 53 Year
  Sex: Female

DRUGS (5)
  1. CALCIUM CARBONATE [Concomitant]
  2. VITAMINS (NO INGREDIENTS/SUBSTANCES) [Concomitant]
  3. SPIRIVA [Concomitant]
  4. RECLAST [Suspect]
     Dosage: 5 MG, INTRAVENOUS
     Route: 042
     Dates: start: 20100924
  5. NEXIUM [Concomitant]

REACTIONS (13)
  - MUSCULOSKELETAL STIFFNESS [None]
  - MALAISE [None]
  - ASTHENIA [None]
  - BLOOD SODIUM DECREASED [None]
  - PAIN [None]
  - PYREXIA [None]
  - FEELING ABNORMAL [None]
  - BLOOD PRESSURE DECREASED [None]
  - ARTHRITIS [None]
  - DIARRHOEA [None]
  - BLOOD CALCIUM DECREASED [None]
  - NAUSEA [None]
  - GAIT DISTURBANCE [None]
